FAERS Safety Report 21396266 (Version 1)
Quarter: 2022Q3

REPORT INFORMATION
  Report Type: Spontaneous
  Country: CA (occurrence: CA)
  Receive Date: 20220930
  Receipt Date: 20220930
  Transmission Date: 20221027
  Serious: Yes (Other)
  Sender: FDA-Public Use
  Company Number: None

PATIENT
  Age: 52 Year
  Sex: Female

DRUGS (8)
  1. PACLITAXEL [Suspect]
     Active Substance: PACLITAXEL
     Indication: Endometrial cancer stage III
     Dosage: 1 EVERY 3 WEEKS, INTRAVENOUS INJECTION
  2. ACETAMINOPHEN [Concomitant]
     Active Substance: ACETAMINOPHEN
  3. CARBOPLATIN [Concomitant]
     Active Substance: CARBOPLATIN
     Dosage: INTRAVENOUS
  4. DULOXETINE HYDROCHLORIDE [Concomitant]
     Active Substance: DULOXETINE HYDROCHLORIDE
     Dosage: DELAYED RELEASE
     Route: 048
  5. IBUPROFEN [Concomitant]
     Active Substance: IBUPROFEN
  6. DIMETHYL SULFONE [Concomitant]
     Active Substance: DIMETHYL SULFONE
  7. PUMPKIN OIL [Concomitant]
  8. QUETIAPINE [Concomitant]
     Active Substance: QUETIAPINE

REACTIONS (3)
  - Rash papular [Recovered/Resolved]
  - Urticaria [Recovered/Resolved]
  - Vulvovaginal erythema [Recovered/Resolved]
